FAERS Safety Report 8290791-4 (Version None)
Quarter: 2012Q2

REPORT INFORMATION
  Report Type: 
  Country: None (occurrence: None)
  Receive Date: 20120417
  Receipt Date: 20120409
  Transmission Date: 20120825
  Serious: Yes (Other)
  Sender: FDA-Public Use
  Company Number: US-BAYER-2012-000494

PATIENT
  Age: 30 Year
  Sex: Female
  Weight: 72.562 kg

DRUGS (1)
  1. MIRENA [Suspect]
     Indication: CONTRACEPTION
     Dosage: 20 MCG, QD
     Dates: start: 20110428, end: 20111230

REACTIONS (8)
  - DEVICE DISLOCATION [None]
  - VAGINAL HAEMORRHAGE [None]
  - DEVICE DIFFICULT TO USE [None]
  - DEVICE BREAKAGE [None]
  - ABDOMINAL PAIN [None]
  - PROCEDURAL PAIN [None]
  - POST PROCEDURAL HAEMORRHAGE [None]
  - GENITAL HAEMORRHAGE [None]
